FAERS Safety Report 4401618-2 (Version None)
Quarter: 2004Q3

REPORT INFORMATION
  Report Type: 
  Country: None (occurrence: None)
  Receive Date: 20040714
  Receipt Date: 20040702
  Transmission Date: 20050211
  Serious: Yes (Other)
  Sender: FDA-Public Use
  Company Number: K200400962

PATIENT
  Age: 2 Day

DRUGS (1)
  1. FLORINEF (FLUDROCORTISONE ACETATE) TABLET, 1.0 MG [Suspect]
     Dosage: 0.1 MG, TRANSPLACENTAL
     Route: 062
     Dates: start: 20031001

REACTIONS (2)
  - DRUG EXPOSURE DURING PREGNANCY [None]
  - OXYGEN SATURATION ABNORMAL [None]
